FAERS Safety Report 14403501 (Version 6)
Quarter: 2020Q2

REPORT INFORMATION
  Report Type: Spontaneous
  Country: CA (occurrence: CA)
  Receive Date: 20180117
  Receipt Date: 20200428
  Transmission Date: 20200713
  Serious: Yes (Other)
  Sender: FDA-Public Use
  Company Number: CA-PFIZER INC-2018017658

PATIENT
  Age: 62 Year
  Sex: Female

DRUGS (6)
  1. WARFARIN [Concomitant]
     Active Substance: WARFARIN
     Dosage: UNK
  2. XELJANZ [Concomitant]
     Active Substance: TOFACITINIB CITRATE
     Indication: RHEUMATOID ARTHRITIS
     Dosage: 5 MG, 2X/DAY
     Route: 048
     Dates: start: 20180202
  3. HUMIRA [Concomitant]
     Active Substance: ADALIMUMAB
     Dosage: UNK
  4. ORENCIA [Concomitant]
     Active Substance: ABATACEPT
     Dosage: UNK
  5. ENBREL [Concomitant]
     Active Substance: ETANERCEPT
     Dosage: UNK
  6. METHOTREXATE SODIUM. [Suspect]
     Active Substance: METHOTREXATE SODIUM
     Indication: RHEUMATOID ARTHRITIS
     Dosage: 20 MG, WEEKLY
     Route: 048

REACTIONS (8)
  - Psoriatic arthropathy [Not Recovered/Not Resolved]
  - Sensitivity to weather change [Unknown]
  - Therapeutic product effect incomplete [Unknown]
  - Fatigue [Unknown]
  - Arthropathy [Not Recovered/Not Resolved]
  - Back pain [Not Recovered/Not Resolved]
  - Depressed mood [Not Recovered/Not Resolved]
  - Psoriasis [Not Recovered/Not Resolved]
